FAERS Safety Report 9701891 (Version 2)
Quarter: 2013Q4

REPORT INFORMATION
  Report Type: Spontaneous
  Country: GB (occurrence: GB)
  Receive Date: 20131121
  Receipt Date: 20131126
  Transmission Date: 20140711
  Serious: Yes (Life-Threatening, Hospitalization)
  Sender: FDA-Public Use
  Company Number: GB-ASTRAZENECA-2013SE84118

PATIENT
  Age: 6928 Day
  Sex: Male

DRUGS (4)
  1. SEROQUEL XL [Suspect]
     Indication: BIPOLAR DISORDER
     Route: 048
     Dates: start: 201211
  2. SEROQUEL XL [Suspect]
     Indication: BIPOLAR DISORDER
     Route: 048
     Dates: start: 20131115
  3. SERTRALINE [Concomitant]
     Indication: DEPRESSION
     Dosage: 150
     Route: 048
  4. SERTRALINE [Concomitant]
     Indication: DEPRESSION
     Route: 048
     Dates: start: 20130709, end: 20131026

REACTIONS (9)
  - Intentional overdose [Unknown]
  - Suicide attempt [Unknown]
  - Aggression [Recovered/Resolved]
  - Disorientation [Recovered/Resolved]
  - Antipsychotic drug level increased [Recovered/Resolved]
  - Infection [Recovered/Resolved]
  - Confusional state [Recovered/Resolved]
  - Blood creatine phosphokinase increased [Recovered/Resolved]
  - Convulsion [Recovered/Resolved]
